FAERS Safety Report 21927885 (Version 1)
Quarter: 2023Q1

REPORT INFORMATION
  Report Type: Other
  Country: CA (occurrence: None)
  Receive Date: 20230130
  Receipt Date: 20230130
  Transmission Date: 20230417
  Serious: No
  Sender: FDA-Public Use
  Company Number: CA-ROCHE-3272253

PATIENT
  Sex: Female

DRUGS (2)
  1. OCREVUS [Suspect]
     Active Substance: OCRELIZUMAB
     Indication: Relapsing-remitting multiple sclerosis
     Dosage: 300 MG AT DAY 0 AND 14, THEN 600 MG EVERY 6 MONTH
     Route: 042
     Dates: start: 20180830
  2. TYLENOL [Suspect]
     Active Substance: ACETAMINOPHEN
     Indication: Headache
     Route: 065

REACTIONS (13)
  - Increased tendency to bruise [Not Recovered/Not Resolved]
  - Defaecation disorder [Not Recovered/Not Resolved]
  - COVID-19 [Recovered/Resolved]
  - Blood iron decreased [Unknown]
  - Frequent bowel movements [Unknown]
  - Skin fissures [Unknown]
  - Skin atrophy [Unknown]
  - Skin fragility [Unknown]
  - Dental caries [Unknown]
  - Dental caries [Unknown]
  - Drug intolerance [Unknown]
  - Tooth extraction [Unknown]
  - Tooth loss [Unknown]
